FAERS Safety Report 16894273 (Version 3)
Quarter: 2020Q1

REPORT INFORMATION
  Report Type: Report from Study
  Country: AT (occurrence: AT)
  Receive Date: 20191008
  Receipt Date: 20200123
  Transmission Date: 20200409
  Serious: Yes (Hospitalization)
  Sender: FDA-Public Use
  Company Number: AT-PFIZER INC-2019282325

PATIENT
  Age: 62 Year
  Sex: Female
  Weight: 80 kg

DRUGS (59)
  1. PERTUZUMAB. [Suspect]
     Active Substance: PERTUZUMAB
     Dosage: 420 MG, EVERY 3 WEEKS
     Route: 042
     Dates: start: 20171121
  2. TRASTUZUMAB EMTANSINE [Suspect]
     Active Substance: ADO-TRASTUZUMAB EMTANSINE
     Dosage: 3.6 MG/M2, EVERY 3 WEEKS
     Route: 042
     Dates: start: 20180424
  3. CAPECITABINE. [Suspect]
     Active Substance: CAPECITABINE
     Indication: HER-2 POSITIVE BREAST CANCER
     Dosage: 3500 MG, 1X/DAY, RECEIVED DOSE ON 10/SEP/2018, MOST RECENT DOSE PRIOR TO THE EVENT: 20190527
     Route: 048
     Dates: start: 20180904
  4. NOVALGIN (METAMIZOLE SODIUM) [Concomitant]
     Active Substance: METAMIZOLE SODIUM
     Indication: RESPIRATORY TRACT INFECTION
     Dosage: UNK
     Route: 065
     Dates: start: 20190315
  5. TEMESTA [LORAZEPAM] [Concomitant]
     Active Substance: LORAZEPAM
     Dosage: UNK
     Route: 065
     Dates: start: 20190226
  6. HYDAL [Concomitant]
     Active Substance: HYDROMORPHONE HYDROCHLORIDE
     Dosage: UNK
     Dates: start: 20180628, end: 20190226
  7. FENISTIL [Concomitant]
     Active Substance: DIMETHINDENE
     Dosage: UNK
     Dates: start: 20170327, end: 20180313
  8. AMOXICILLIN/CLAVULANATE POTASSIUM [Concomitant]
     Active Substance: AMOXICILLIN\CLAVULANATE POTASSIUM
     Indication: VASCULAR DEVICE INFECTION
     Route: 065
     Dates: start: 20180215, end: 20180215
  9. LOVENOX [Concomitant]
     Active Substance: ENOXAPARIN SODIUM
     Dosage: UNK
     Route: 065
     Dates: start: 20180126, end: 20180208
  10. LOVENOX [Concomitant]
     Active Substance: ENOXAPARIN SODIUM
     Dosage: UNK
     Route: 065
     Dates: start: 20190312, end: 20190315
  11. BAMBEC [Concomitant]
     Active Substance: BAMBUTEROL HYDROCHLORIDE
     Dosage: UNK
  12. NOVALGIN (METAMIZOLE SODIUM) [Concomitant]
     Active Substance: METAMIZOLE SODIUM
     Indication: BACK PAIN
     Dosage: UNK
     Route: 065
     Dates: start: 20170327
  13. DAFLON [DIOSMIN;HESPERIDIN] [Concomitant]
     Active Substance: DIOSMIN\HESPERIDIN
     Dosage: UNK
     Route: 065
  14. FORTECORTIN [DEXAMETHASONE] [Concomitant]
     Active Substance: DEXAMETHASONE
     Dosage: UNK
     Dates: start: 20180127, end: 20180313
  15. LAEVOLAC [Concomitant]
     Active Substance: LACTULOSE
     Dosage: UNK
     Route: 065
     Dates: start: 20171212
  16. AUGMENTIN [Concomitant]
     Active Substance: AMOXICILLIN\CLAVULANATE POTASSIUM
     Indication: RESPIRATORY TRACT INFECTION
     Dosage: UNK
     Route: 065
     Dates: start: 20190509, end: 20190516
  17. ZOLPIDEM [Concomitant]
     Active Substance: ZOLPIDEM TARTRATE
     Dosage: UNK
     Route: 065
     Dates: start: 20190215, end: 20190315
  18. DOXYCYCLIN [DOXYCYCLINE] [Concomitant]
     Active Substance: DOXYCYCLINE
     Indication: RESPIRATORY TRACT INFECTION
     Route: 065
     Dates: start: 20190502, end: 20190509
  19. TRITTICO [Concomitant]
     Active Substance: TRAZODONE HYDROCHLORIDE
     Route: 065
  20. ULSAL [Concomitant]
     Active Substance: RANITIDINE HYDROCHLORIDE
     Dosage: UNK
     Route: 065
     Dates: start: 20170327, end: 20180813
  21. TRASTUZUMAB. [Suspect]
     Active Substance: TRASTUZUMAB
     Dosage: 480 MG, EVERY 3 WEEKS, MOST RECENT DOSE PRIOR TO THE EVENT: 27/MAY/2019
     Route: 042
     Dates: start: 20190527
  22. NAVELBINE [Suspect]
     Active Substance: VINORELBINE TARTRATE
     Dosage: 50 MG, UNK, FREQUENCY: OTHER,
     Route: 048
     Dates: start: 20170530
  23. TRASTUZUMAB EMTANSINE [Suspect]
     Active Substance: ADO-TRASTUZUMAB EMTANSINE
     Dosage: 3.6 MG/M2, EVERY 3 WEEKS
     Route: 042
     Dates: start: 20180515
  24. DAFLON [DIOSMIN;HESPERIDIN] [Concomitant]
     Active Substance: DIOSMIN\HESPERIDIN
     Dosage: UNK
     Route: 065
  25. ULSAL [Concomitant]
     Active Substance: RANITIDINE HYDROCHLORIDE
     Indication: CHILLS
     Dosage: UNK
     Route: 065
     Dates: start: 20170306, end: 20170306
  26. CAPECITABINE. [Suspect]
     Active Substance: CAPECITABINE
     Dosage: 3500 MG, 1X/DAY
     Route: 048
     Dates: start: 20190527
  27. NOVALGIN (METAMIZOLE SODIUM) [Concomitant]
     Active Substance: METAMIZOLE SODIUM
     Dosage: UNK
     Dates: start: 20190509, end: 20190509
  28. FORTECORTIN [DEXAMETHASONE] [Concomitant]
     Active Substance: DEXAMETHASONE
     Dosage: UNK
     Route: 065
     Dates: start: 20190215, end: 20190215
  29. PASPERTIN [METOCLOPRAMIDE HYDROCHLORIDE] [Concomitant]
     Active Substance: METOCLOPRAMIDE HYDROCHLORIDE
     Dosage: UNK
     Route: 065
     Dates: start: 20171212
  30. KYTRIL [Concomitant]
     Active Substance: GRANISETRON HYDROCHLORIDE
     Route: 065
     Dates: start: 20171212, end: 20180813
  31. MEXALEN [Concomitant]
     Active Substance: ACETAMINOPHEN
     Route: 065
     Dates: start: 20170327, end: 20170327
  32. KALIORAL [CITRIC ACID;POTASSIUM BICARBONATE;POTASSIUM CITRATE] [Concomitant]
  33. TRASTUZUMAB. [Suspect]
     Active Substance: TRASTUZUMAB
     Indication: HER-2 POSITIVE BREAST CANCER
     Dosage: 480 MG, EVERY 3 WEEKS, MOST RECENT DOSE PRIOR TO THE EVENT: 27/MAY/2019
     Route: 042
     Dates: start: 20170306
  34. NAVELBINE [Suspect]
     Active Substance: VINORELBINE TARTRATE
     Indication: HER-2 POSITIVE BREAST CANCER
     Dosage: 50 MG, UNK, FREQUENCY: OTHER, FREQUENCY: OTHER, RECEIVED DOSE ON 30/MAY/2017, MOST RECENT DOSE PRIOR
     Route: 048
     Dates: start: 20170306
  35. LIXIANA [Concomitant]
     Active Substance: EDOXABAN TOSYLATE
     Indication: PULMONARY EMBOLISM
     Dosage: UNK
     Route: 065
     Dates: start: 20190315
  36. DEXAMETHASON [DEXAMETHASONE] [Concomitant]
     Active Substance: DEXAMETHASONE
     Route: 065
     Dates: start: 20170829, end: 20180813
  37. VENLAFAB [Concomitant]
     Active Substance: VENLAFAXINE HYDROCHLORIDE
     Dosage: UNK
     Route: 065
     Dates: start: 20190315
  38. NAVELBINE [Suspect]
     Active Substance: VINORELBINE TARTRATE
     Dosage: 50 MG, UNK, FREQUENCY: OTHER,
     Route: 048
     Dates: start: 20170627
  39. CAPECITABINE. [Suspect]
     Active Substance: CAPECITABINE
     Dosage: 3500 MG, 1X/DAY
     Route: 048
     Dates: start: 20180910
  40. NOVALGIN (METAMIZOLE SODIUM) [Concomitant]
     Active Substance: METAMIZOLE SODIUM
     Indication: HEPATIC PAIN
     Dosage: UNK
     Route: 065
     Dates: start: 20171212
  41. PARACODIN [DIHYDROCODEINE] [Concomitant]
     Indication: COUGH
     Route: 065
     Dates: end: 20180115
  42. EMEND [Concomitant]
     Active Substance: APREPITANT
     Route: 065
     Dates: start: 20180127, end: 20180815
  43. ZYRTEC (AUSTRIA) [Concomitant]
     Indication: PRURITUS
     Route: 065
     Dates: start: 20170327, end: 20171215
  44. TRASTUZUMAB. [Suspect]
     Active Substance: TRASTUZUMAB
     Dosage: 480 MG, EVERY 3 WEEKS
     Route: 042
     Dates: start: 20171121
  45. PERTUZUMAB. [Suspect]
     Active Substance: PERTUZUMAB
     Indication: HER-2 POSITIVE BREAST CANCER
     Dosage: 420 MG, EVERY 3 WEEKS; RECEIVED DOSE ON 21/NOV/2017
     Route: 042
     Dates: start: 20170306
  46. NOVALGIN (METAMIZOLE SODIUM) [Concomitant]
     Active Substance: METAMIZOLE SODIUM
     Dosage: UNK
     Dates: start: 20150615, end: 20150615
  47. FORTECORTIN [DEXAMETHASONE] [Concomitant]
     Active Substance: DEXAMETHASONE
     Dosage: UNK
     Dates: start: 20170829, end: 20180813
  48. HYDAL [Concomitant]
     Active Substance: HYDROMORPHONE HYDROCHLORIDE
     Indication: BACK PAIN
     Dosage: UNK
     Route: 065
     Dates: start: 20181227
  49. LYRICA [Concomitant]
     Active Substance: PREGABALIN
     Indication: BACK PAIN
     Dosage: UNK
     Route: 065
     Dates: start: 20181227, end: 20190226
  50. CONCOR COR [Concomitant]
     Active Substance: BISOPROLOL FUMARATE
     Dosage: UNK
     Route: 065
  51. MIRTAZAPIN [Concomitant]
     Active Substance: MIRTAZAPINE
     Dosage: UNK
     Route: 065
     Dates: start: 20190315
  52. SOLU-DACORTIN [Concomitant]
     Active Substance: PREDNISOLONE SODIUM SUCCINATE
     Indication: CHILLS
     Route: 065
     Dates: start: 20170306, end: 20170306
  53. TRASTUZUMAB EMTANSINE [Suspect]
     Active Substance: ADO-TRASTUZUMAB EMTANSINE
     Indication: HER-2 POSITIVE BREAST CANCER
     Dosage: 3.6 MG/M2, EVERY 3 WEEKS, RECEIVED ON 24/APR/2018, MOST RECENT DOSE PRIOR TO THE EVENT: 15/MAY/2018
     Route: 042
     Dates: start: 20171212
  54. NOVALGIN (METAMIZOLE SODIUM) [Concomitant]
     Active Substance: METAMIZOLE SODIUM
     Dosage: UNK
     Dates: start: 20190615, end: 20190615
  55. LASIX [Concomitant]
     Active Substance: FUROSEMIDE
     Dosage: UNK
     Route: 065
     Dates: start: 20190907
  56. SUCRALFAT [Concomitant]
     Active Substance: SUCRALFATE
     Dosage: UNK
     Route: 065
     Dates: start: 20190907
  57. HYDAL [Concomitant]
     Active Substance: HYDROMORPHONE HYDROCHLORIDE
     Dosage: UNK
     Dates: start: 20180403, end: 20180628
  58. PANTOLOC [PANTOPRAZOLE] [Concomitant]
     Active Substance: PANTOPRAZOLE SODIUM
     Dosage: UNK
     Route: 065
     Dates: start: 20170302
  59. FENISTIL [Concomitant]
     Active Substance: DIMETHINDENE
     Indication: CHILLS
     Dosage: UNK
     Route: 065
     Dates: start: 20170306, end: 20170306

REACTIONS (4)
  - Cough [Not Recovered/Not Resolved]
  - Respiratory tract infection [Recovered/Resolved]
  - Dyspnoea [Recovered/Resolved]
  - Dyspnoea [Not Recovered/Not Resolved]

NARRATIVE: CASE EVENT DATE: 20190510
